FAERS Safety Report 19557538 (Version 2)
Quarter: 2021Q4

REPORT INFORMATION
  Report Type: Report from Study
  Country: JP (occurrence: JP)
  Receive Date: 20210715
  Receipt Date: 20211129
  Transmission Date: 20220303
  Serious: Yes (Hospitalization)
  Sender: FDA-Public Use
  Company Number: JP-MYLANLABS-2021M1042353

PATIENT
  Age: 77 Year
  Sex: Male

DRUGS (12)
  1. CARBOPLATIN [Suspect]
     Active Substance: CARBOPLATIN
     Indication: Lung neoplasm malignant
     Dosage: 350 MILLIGRAM, QD
     Route: 041
     Dates: start: 20180524, end: 20180524
  2. CARBOPLATIN [Suspect]
     Active Substance: CARBOPLATIN
     Dosage: 350 MILLIGRAM, QD
     Route: 041
     Dates: start: 20180620, end: 20180620
  3. CARBOPLATIN [Suspect]
     Active Substance: CARBOPLATIN
     Dosage: 350 MILLIGRAM, QD
     Route: 041
     Dates: start: 20180718, end: 20180718
  4. CARBOPLATIN [Suspect]
     Active Substance: CARBOPLATIN
     Dosage: 350 MILLIGRAM, QD
     Route: 041
     Dates: start: 20180822, end: 20180822
  5. CARBOPLATIN [Suspect]
     Active Substance: CARBOPLATIN
     Dosage: 350 MILLIGRAM, QD
     Route: 041
     Dates: start: 20180919, end: 20180919
  6. CARBOPLATIN [Suspect]
     Active Substance: CARBOPLATIN
     Dosage: 350 MILLIGRAM, QD
     Route: 041
     Dates: start: 20181017, end: 20181017
  7. PACLITAXEL [Suspect]
     Active Substance: PACLITAXEL
     Indication: Lung neoplasm malignant
     Dosage: 100 MILLIGRAM, QD
     Route: 042
     Dates: start: 20180524, end: 20180524
  8. PACLITAXEL [Suspect]
     Active Substance: PACLITAXEL
     Dosage: 100 MILLIGRAM, QD
     Route: 042
     Dates: start: 20180620, end: 20180620
  9. PACLITAXEL [Suspect]
     Active Substance: PACLITAXEL
     Dosage: 100 MILLIGRAM, QD
     Route: 042
     Dates: start: 20180718, end: 20180718
  10. PACLITAXEL [Suspect]
     Active Substance: PACLITAXEL
     Dosage: 100 MILLIGRAM, QD
     Route: 042
     Dates: start: 20180822, end: 20180822
  11. PACLITAXEL [Suspect]
     Active Substance: PACLITAXEL
     Dosage: 100 MILLIGRAM, QD
     Route: 042
     Dates: start: 20180919, end: 20180919
  12. PACLITAXEL [Suspect]
     Active Substance: PACLITAXEL
     Dosage: 100 MILLIGRAM, QD
     Route: 042
     Dates: start: 20181017, end: 20181017

REACTIONS (2)
  - Pneumonitis [Recovered/Resolved with Sequelae]
  - Disease recurrence [Recovered/Resolved with Sequelae]

NARRATIVE: CASE EVENT DATE: 20181114
